FAERS Safety Report 9402845 (Version 2)
Quarter: 2013Q4

REPORT INFORMATION
  Report Type: Report from Study
  Country: BR (occurrence: BR)
  Receive Date: 20130716
  Receipt Date: 20131011
  Transmission Date: 20140711
  Serious: Yes (Hospitalization, Disabling, Other)
  Sender: FDA-Public Use
  Company Number: BR-BAYER-2013-085649

PATIENT
  Age: 60 Year
  Sex: Male

DRUGS (1)
  1. NEXAVAR [Suspect]
     Indication: HEPATOCELLULAR CARCINOMA
     Dosage: 2 DF,BID
     Route: 048
     Dates: start: 20130410, end: 201306

REACTIONS (10)
  - Cyanosis [Recovered/Resolved]
  - Myocardial ischaemia [None]
  - Myocardial infarction [None]
  - Cyanosis [None]
  - Movement disorder [None]
  - Skin wound [Recovered/Resolved]
  - Aphonia [Not Recovered/Not Resolved]
  - Pain in extremity [Not Recovered/Not Resolved]
  - Hypoaesthesia [None]
  - Weight decreased [None]
